FAERS Safety Report 10599189 (Version 5)
Quarter: 2015Q1

REPORT INFORMATION
  Report Type: Report from Study
  Country: CA (occurrence: CA)
  Receive Date: 20141121
  Receipt Date: 20150213
  Transmission Date: 20150720
  Serious: Yes (Other)
  Sender: FDA-Public Use
  Company Number: PHHY2014CA148439

PATIENT
  Age: 55 Year
  Sex: Female

DRUGS (3)
  1. GILENYA [Suspect]
     Active Substance: FINGOLIMOD HYDROCHLORIDE
     Indication: MULTIPLE SCLEROSIS
     Dosage: UNK
     Route: 048
     Dates: start: 20141106, end: 20141120
  2. GILENYA [Suspect]
     Active Substance: FINGOLIMOD HYDROCHLORIDE
     Dosage: QOD
     Route: 048
     Dates: start: 20150109
  3. GILENYA [Suspect]
     Active Substance: FINGOLIMOD HYDROCHLORIDE
     Dosage: UNK
     Route: 048
     Dates: start: 20141216

REACTIONS (8)
  - Hepatic enzyme increased [Unknown]
  - Bundle branch block right [Recovered/Resolved]
  - Atrioventricular block second degree [Recovered/Resolved]
  - Hepatic enzyme increased [Recovered/Resolved]
  - Heart rate decreased [Unknown]
  - Blood pressure decreased [Unknown]
  - Prescribed underdose [Unknown]
  - Off label use [Unknown]

NARRATIVE: CASE EVENT DATE: 20141106
